FAERS Safety Report 9383455 (Version 2)
Quarter: 2013Q3

REPORT INFORMATION
  Report Type: Spontaneous
  Country: US (occurrence: US)
  Receive Date: 20130704
  Receipt Date: 20130910
  Transmission Date: 20140515
  Serious: Yes (Other)
  Sender: FDA-Public Use
  Company Number: US-PFIZER INC-2013197790

PATIENT
  Age: 54 Year
  Sex: Female
  Weight: 77.1 kg

DRUGS (2)
  1. XANAX [Suspect]
     Indication: PANIC DISORDER
     Dosage: 1 MG, AS NEEDED
     Route: 048
  2. XANAX [Suspect]
     Indication: AGORAPHOBIA

REACTIONS (1)
  - Uterine disorder [Unknown]
